FAERS Safety Report 8815030 (Version 1)
Quarter: 2012Q4

REPORT INFORMATION
  Report Type: 
  Country: DE (occurrence: DE)
  Receive Date: 20120928
  Receipt Date: 20120928
  Transmission Date: 20130627
  Serious: Yes (Hospitalization, Other)
  Sender: FDA-Public Use
  Company Number: DE-ELI_LILLY_AND_COMPANY-DE201209005141

PATIENT
  Age: 60 Year
  Sex: Female

DRUGS (7)
  1. FORSTEO [Suspect]
     Indication: OSTEOPOROSIS
     Dosage: UNK, qd
     Route: 058
     Dates: start: 20101215
  2. ANTIEPILEPTICS [Concomitant]
  3. OXYCODON [Concomitant]
     Indication: ANALGESIC THERAPY
  4. ORAMORPH [Concomitant]
  5. NOVALGIN [Concomitant]
  6. OSTEOPLUS                          /00944201/ [Concomitant]
  7. ANTIDEPRESSANTS [Concomitant]

REACTIONS (3)
  - Epilepsy [Unknown]
  - Fall [Recovered/Resolved]
  - Headache [Unknown]
